FAERS Safety Report 9958636 (Version 1)
Quarter: 2014Q1

REPORT INFORMATION
  Report Type: Spontaneous
  Country: US (occurrence: US)
  Receive Date: 20140305
  Receipt Date: 20140305
  Transmission Date: 20141002
  Serious: Yes (Other)
  Sender: FDA-Public Use
  Company Number: US-TEVA-465460USA

PATIENT
  Sex: Female

DRUGS (3)
  1. ZOLPIDEM [Suspect]
     Dosage: Q PM
  2. XANAX [Suspect]
  3. OXYCODONE [Concomitant]
     Indication: PAIN

REACTIONS (7)
  - Loss of consciousness [Unknown]
  - Spinal fracture [Unknown]
  - Rib fracture [Unknown]
  - Memory impairment [Unknown]
  - Contusion [Unknown]
  - Crying [Unknown]
  - Feeling abnormal [Unknown]
